FAERS Safety Report 20931438 (Version 1)
Quarter: 2022Q2

REPORT INFORMATION
  Report Type: Other
  Country: GB (occurrence: None)
  Receive Date: 20220608
  Receipt Date: 20220608
  Transmission Date: 20220721
  Serious: Yes (Death, Disabling)
  Sender: FDA-Public Use
  Company Number: GB-ROCHE-3108721

PATIENT
  Age: 52 Year
  Sex: Female
  Weight: 129 kg

DRUGS (3)
  1. PRALSETINIB [Suspect]
     Active Substance: PRALSETINIB
     Indication: Non-small cell lung cancer
     Route: 048
     Dates: start: 20210507
  2. PRALSETINIB [Suspect]
     Active Substance: PRALSETINIB
     Route: 048
     Dates: start: 20201208, end: 20220131
  3. OSIMERTINIB [Concomitant]
     Active Substance: OSIMERTINIB
     Indication: Lung neoplasm malignant
     Route: 048
     Dates: end: 20220131

REACTIONS (2)
  - Death [Fatal]
  - Myositis [Not Recovered/Not Resolved]

NARRATIVE: CASE EVENT DATE: 20210801
